FAERS Safety Report 5744330-X (Version None)
Quarter: 2008Q2

REPORT INFORMATION
  Report Type: 
  Country: None (occurrence: None)
  Receive Date: 20080516
  Receipt Date: 20080516
  Transmission Date: 20081010
  Serious: Yes (Other)
  Sender: FDA-Public Use
  Company Number: None

PATIENT
  Age: 51 Year
  Sex: Male
  Weight: 124.7392 kg

DRUGS (1)
  1. LEVAQUIN [Suspect]
     Indication: URINARY TRACT INFECTION
     Dosage: 500MG 1X DAILY PO
     Route: 048
     Dates: start: 20080508, end: 20080514

REACTIONS (30)
  - ABDOMINAL PAIN [None]
  - ABNORMAL BEHAVIOUR [None]
  - ABNORMAL DREAMS [None]
  - AGITATION [None]
  - ANGER [None]
  - APPENDICITIS [None]
  - BALANCE DISORDER [None]
  - BLADDER PAIN [None]
  - CHEST PAIN [None]
  - DIARRHOEA [None]
  - DISCOMFORT [None]
  - DYSPNOEA [None]
  - DYSURIA [None]
  - HALLUCINATION [None]
  - HUNGER [None]
  - INSOMNIA [None]
  - MUSCLE TWITCHING [None]
  - MYALGIA [None]
  - NIGHTMARE [None]
  - PAIN IN EXTREMITY [None]
  - PARANOIA [None]
  - PHARMACEUTICAL PRODUCT COMPLAINT [None]
  - PHARYNGOLARYNGEAL PAIN [None]
  - POOR QUALITY SLEEP [None]
  - PRURITUS [None]
  - RENAL PAIN [None]
  - RESTLESSNESS [None]
  - SWOLLEN TONGUE [None]
  - THIRST [None]
  - VISION BLURRED [None]
